FAERS Safety Report 16410035 (Version 2)
Quarter: 2019Q3

REPORT INFORMATION
  Report Type: Spontaneous
  Country: US (occurrence: US)
  Receive Date: 20190610
  Receipt Date: 20190709
  Transmission Date: 20191004
  Serious: Yes (Hospitalization, Other)
  Sender: FDA-Public Use
  Company Number: US-BAYER-2019-110353

PATIENT
  Age: 65 Year
  Sex: Female
  Weight: 52.15 kg

DRUGS (1)
  1. GADAVIST [Suspect]
     Active Substance: GADOBUTROL
     Dosage: UNK, ONCE
     Route: 042
     Dates: start: 20190406, end: 20190406

REACTIONS (8)
  - Unresponsive to stimuli [Recovered/Resolved]
  - Chest pain [None]
  - Syncope [Recovered/Resolved]
  - Feeling hot [Recovered/Resolved]
  - Dyspnoea [None]
  - Vomiting [Recovered/Resolved]
  - Anaphylactic shock [Recovered/Resolved]
  - Burning sensation [Recovered/Resolved]

NARRATIVE: CASE EVENT DATE: 20190406
